FAERS Safety Report 9152987 (Version 1)
Quarter: 2013Q1

REPORT INFORMATION
  Report Type: Report from Study
  Country: JP (occurrence: JP)
  Receive Date: 20130310
  Receipt Date: 20130310
  Transmission Date: 20140127
  Serious: Yes (Other)
  Sender: FDA-Public Use
  Company Number: JP-US-EMD SERONO, INC.-7155428

PATIENT
  Age: 29 Year
  Sex: Female
  Weight: 57 kg

DRUGS (7)
  1. GONAL-F RFF PEN [Suspect]
     Indication: OVULATION INDUCTION
     Dosage: FIRST CYCLE
     Route: 058
     Dates: start: 20100514, end: 20100517
  2. GONAL-F RFF PEN [Suspect]
     Dosage: SECOND CYCLE
     Route: 058
     Dates: start: 20100613, end: 20100613
  3. HCG [Concomitant]
     Indication: OVULATION INDUCTION
     Dosage: FIST CYCLE
     Route: 030
     Dates: start: 20100519, end: 20100519
  4. HCG [Concomitant]
     Dosage: SECOND CYCLE
     Route: 030
     Dates: start: 20100621, end: 20100621
  5. DUPHASTON [Concomitant]
     Indication: PRODUCT USED FOR UNKNOWN INDICATION
     Route: 048
     Dates: start: 20100524, end: 20100603
  6. DUPHASTON [Concomitant]
     Route: 048
     Dates: start: 20100626, end: 20100723
  7. BUFFERIN [Concomitant]
     Indication: PROPHYLAXIS OF ABORTION
     Route: 048
     Dates: start: 20100626, end: 20100724

REACTIONS (1)
  - Habitual abortion [Recovered/Resolved]
